FAERS Safety Report 15901321 (Version 2)
Quarter: 2019Q1

REPORT INFORMATION
  Report Type: Report from Study
  Country: US (occurrence: US)
  Receive Date: 20190201
  Receipt Date: 20190228
  Transmission Date: 20190417
  Serious: Yes (Hospitalization)
  Sender: FDA-Public Use
  Company Number: US-BAYER-2019-017832

PATIENT
  Age: 56 Year
  Sex: Male

DRUGS (1)
  1. NEXAVAR [Suspect]
     Active Substance: SORAFENIB
     Indication: HEPATOCELLULAR CARCINOMA
     Dosage: 200 MG, BID
     Route: 048
     Dates: start: 20190119, end: 2019

REACTIONS (6)
  - Drug ineffective [None]
  - Blood sodium decreased [None]
  - Insomnia [None]
  - Peripheral swelling [None]
  - Candida infection [None]
  - Off label use [None]

NARRATIVE: CASE EVENT DATE: 2019
